FAERS Safety Report 5396590-5 (Version None)
Quarter: 2007Q3

REPORT INFORMATION
  Report Type: 
  Country: None (occurrence: None)
  Receive Date: 20070725
  Receipt Date: 20070717
  Transmission Date: 20080115
  Serious: Yes (Other)
  Sender: FDA-Public Use
  Company Number: AR-ABBOTT-07P-007-0362067-00

PATIENT
  Age: 68 Year
  Sex: Female

DRUGS (3)
  1. VALCOTE [Suspect]
     Indication: BIPOLAR DISORDER
     Route: 048
     Dates: start: 20041001, end: 20070219
  2. VALCOTE [Suspect]
  3. RISPERIDONE [Concomitant]
     Indication: BIPOLAR DISORDER
     Route: 048
     Dates: start: 20070115, end: 20070219

REACTIONS (1)
  - VENTRICULAR EXTRASYSTOLES [None]
